FAERS Safety Report 10353936 (Version 3)
Quarter: 2016Q4

REPORT INFORMATION
  Report Type: Spontaneous
  Country: CN (occurrence: CN)
  Receive Date: 20140731
  Receipt Date: 20161220
  Transmission Date: 20170206
  Serious: Yes (Death, Other)
  Sender: FDA-Public Use
  Company Number: CN-BAYER-2014-109768

PATIENT
  Age: 71 Year
  Sex: Female

DRUGS (3)
  1. SULBACTAM [Concomitant]
     Active Substance: SULBACTAM
  2. AVELOX [Suspect]
     Active Substance: MOXIFLOXACIN HYDROCHLORIDE
     Indication: LUNG INFECTION
     Dosage: 0.4 G, QD
  3. CEFOPERAZONE SODIUM W/SULBACTAM [Concomitant]
     Active Substance: CEFOPERAZONE SODIUM\SULBACTAM
     Indication: LUNG INFECTION
     Dosage: UNK

REACTIONS (5)
  - Ventricular fibrillation [Fatal]
  - Mydriasis [None]
  - Cardiac arrest [Fatal]
  - Respiratory arrest [None]
  - Loss of consciousness [None]
